FAERS Safety Report 20609571 (Version 2)
Quarter: 2022Q1

REPORT INFORMATION
  Report Type: Report from Study
  Country: US (occurrence: US)
  Receive Date: 20220318
  Receipt Date: 20220331
  Transmission Date: 20220424
  Serious: Yes (Hospitalization)
  Sender: FDA-Public Use
  Company Number: US-Zogenix International Limited, A wholly owned subsidiary of Zogenix, Inc.-2022ZX000160

PATIENT
  Age: 23 Year
  Sex: Male
  Weight: 89.438 kg

DRUGS (4)
  1. FINTEPLA [Suspect]
     Active Substance: FENFLURAMINE
     Indication: Seizure
     Route: 048
     Dates: start: 20210713
  2. RISPERIDONE [Concomitant]
     Active Substance: RISPERIDONE
     Indication: Seizure
     Route: 065
     Dates: start: 20080306
  3. GLYCOPYRROLATE [Concomitant]
     Active Substance: GLYCOPYRROLATE
     Indication: Seizure
     Route: 065
     Dates: start: 20191213
  4. NAYZILAM [Concomitant]
     Active Substance: MIDAZOLAM
     Indication: Seizure
     Dosage: 5 MG
     Route: 065
     Dates: start: 20210514

REACTIONS (5)
  - Subdural haematoma [Recovered/Resolved]
  - Head injury [Unknown]
  - Off label use [Unknown]
  - Fall [Recovered/Resolved]
  - Seizure [Recovered/Resolved]

NARRATIVE: CASE EVENT DATE: 20220213
